FAERS Safety Report 4985464-7 (Version None)
Quarter: 2006Q2

REPORT INFORMATION
  Report Type: 
  Country: None (occurrence: None)
  Receive Date: 20060428
  Receipt Date: 20050318
  Transmission Date: 20061013
  Serious: No
  Sender: FDA-Public Use
  Company Number: US-GLAXOSMITHKLINE-A0550482A

PATIENT
  Age: 2 Year
  Sex: Male

DRUGS (4)
  1. FLOVENT [Suspect]
     Indication: ASTHMA
  2. ZYRTEC [Concomitant]
     Indication: SEASONAL ALLERGY
  3. SINGULAIR [Concomitant]
     Indication: SEASONAL ALLERGY
  4. ALBUTEROL SULFATE AUTOHALER [Concomitant]

REACTIONS (3)
  - ASTHMA [None]
  - COUGH [None]
  - WHEEZING [None]
